FAERS Safety Report 5354108-7 (Version None)
Quarter: 2007Q2

REPORT INFORMATION
  Report Type: 
  Country: None (occurrence: None)
  Receive Date: 20070612
  Receipt Date: 20070601
  Transmission Date: 20071010
  Serious: Yes (Other)
  Sender: FDA-Public Use
  Company Number: US-ROCHE-500448

PATIENT
  Age: 59 Year
  Sex: Female

DRUGS (2)
  1. VALIUM [Suspect]
     Indication: DRUG USE FOR UNKNOWN INDICATION
     Route: 048
  2. DILTIAZEM [Suspect]
     Indication: HYPERTENSION
     Route: 048

REACTIONS (15)
  - BRADYCARDIA [None]
  - CARDIAC ARREST [None]
  - GASTRIC HAEMORRHAGE [None]
  - HYPOTENSION [None]
  - MENTAL STATUS CHANGES [None]
  - NAUSEA [None]
  - NEUROPATHY PERIPHERAL [None]
  - OVERDOSE [None]
  - PANCREATITIS [None]
  - PNEUMONIA ASPIRATION [None]
  - RENAL FAILURE [None]
  - RESPIRATORY DISTRESS [None]
  - VENOUS THROMBOSIS LIMB [None]
  - VENTRICULAR FIBRILLATION [None]
  - VOMITING [None]
